FAERS Safety Report 21315254 (Version 1)
Quarter: 2022Q3

REPORT INFORMATION
  Report Type: Spontaneous
  Country: US (occurrence: US)
  Receive Date: 20220909
  Receipt Date: 20220909
  Transmission Date: 20221027
  Serious: No
  Sender: FDA-Public Use
  Company Number: US-MYLANLABS-2022M1088886

PATIENT
  Sex: Female
  Weight: 54.43 kg

DRUGS (3)
  1. CYCLOSPORINE [Suspect]
     Active Substance: CYCLOSPORINE
     Indication: Dry eye
     Dosage: 1 DROPS, BID (1 DROP TWICE A DAY IN EACH EYE)
     Route: 047
     Dates: start: 20220806
  2. SYSTANE (HYPROMELLOSE 2910 (4000 MPA.S)) [Concomitant]
     Active Substance: HYPROMELLOSE 2910 (4000 MPA.S)
     Dosage: UNK
     Route: 065
  3. RESTASIS [Concomitant]
     Active Substance: CYCLOSPORINE
     Dosage: UNK
     Route: 065

REACTIONS (3)
  - Eye pain [Not Recovered/Not Resolved]
  - Eye irritation [Not Recovered/Not Resolved]
  - Vision blurred [Not Recovered/Not Resolved]
